FAERS Safety Report 12805478 (Version 1)
Quarter: 2016Q4

REPORT INFORMATION
  Report Type: Spontaneous
  Country: JP (occurrence: JP)
  Receive Date: 20161004
  Receipt Date: 20161004
  Transmission Date: 20170207
  Serious: Yes (Other)
  Sender: FDA-Public Use
  Company Number: JP-SUN PHARMACEUTICAL INDUSTRIES LTD-2016RR-124954

PATIENT
  Age: 50 Year
  Sex: Female

DRUGS (8)
  1. TS-1 [Suspect]
     Active Substance: GIMERACIL\OTERACIL\TEGAFUR
     Indication: MALIGNANT ASCITES
     Dosage: 100 MG/M2, 2 WEEKS ADMINISTRATION AND 1 WEEK REST, 3 COURSES
     Route: 065
     Dates: start: 200606
  2. DOCETAXEL. [Suspect]
     Active Substance: DOCETAXEL
     Dosage: 60 MG/M2, DAY 1 IN TOTAL 13 COURSES
     Route: 065
     Dates: start: 200804
  3. CISPLATIN. [Suspect]
     Active Substance: CISPLATIN
     Indication: MALIGNANT ASCITES
     Dosage: 80 MG/BODY, BIWEEKLY, A TOTAL OF 5 COURSES
     Route: 065
     Dates: start: 200905
  4. TS-1 [Suspect]
     Active Substance: GIMERACIL\OTERACIL\TEGAFUR
     Dosage: 100 MG/M2, 2 WEEKS ADMINISTRATION AND 2 WEEKS REST, IN TOTAL 13 COURSES
     Route: 065
     Dates: start: 200804
  5. IRINOTECAN [Suspect]
     Active Substance: IRINOTECAN
     Indication: MALIGNANT ASCITES
     Dosage: 80 MG/BODY, A TOTAL OF 5 COURSES
     Route: 065
     Dates: start: 200905
  6. TS-1 [Suspect]
     Active Substance: GIMERACIL\OTERACIL\TEGAFUR
     Indication: NEOPLASM RECURRENCE
     Dosage: 80 MG/M2 (TWO WEEKS ADMINISTRATION AND 2 WEEKS REST) 2 COURSES
     Route: 065
  7. DOCETAXEL. [Suspect]
     Active Substance: DOCETAXEL
     Indication: MALIGNANT ASCITES
     Dosage: 56 MG/M2, DAY 1, 3 COURSES
     Route: 065
     Dates: start: 200606
  8. DOCETAXEL. [Suspect]
     Active Substance: DOCETAXEL
     Dosage: 40 MG/M2, DAY 1 AND DAY 7
     Route: 065

REACTIONS (5)
  - Vision blurred [Not Recovered/Not Resolved]
  - Stomatitis [Not Recovered/Not Resolved]
  - Decreased appetite [Not Recovered/Not Resolved]
  - Malabsorption [Unknown]
  - Diarrhoea [Not Recovered/Not Resolved]
